FAERS Safety Report 5445908-3 (Version None)
Quarter: 2007Q3

REPORT INFORMATION
  Report Type: 
  Country: None (occurrence: None)
  Receive Date: 20070904
  Receipt Date: 20070820
  Transmission Date: 20080115
  Serious: Yes (Death)
  Sender: FDA-Public Use
  Company Number: 100#03#2007-03155

PATIENT
  Age: 32 Month
  Sex: Female

DRUGS (6)
  1. CARBOPLATIN [Suspect]
     Indication: RETINOBLASTOMA BILATERAL
     Dosage: 4800 MG/M2 (8 CYCLES)
  2. CYCLOSPORINE [Suspect]
     Indication: RETINOBLASTOMA BILATERAL
     Dosage: (6 CYCLES)
  3. METHOTREXATE [Concomitant]
     Indication: RETINOBLASTOMA BILATERAL
     Dosage: (4 CYCLES) INTRATHECAL
  4. CYTARABINE [Suspect]
     Indication: RETINOBLASTOMA BILATERAL
     Dosage: (4 CYCLES)
  5. ETOPOSIDE [Suspect]
     Indication: RETINOBLASTOMA BILATERAL
     Dosage: 2400 MG/M2 (8 CYCLES)
  6. VINCRISTINE [Suspect]
     Indication: RETINOBLASTOMA BILATERAL
     Dosage: 12 MG/M2 (2 CYCLES)

REACTIONS (1)
  - ACUTE MYELOID LEUKAEMIA [None]
